FAERS Safety Report 26142413 (Version 1)
Quarter: 2025Q4

REPORT INFORMATION
  Report Type: Spontaneous
  Country: JP (occurrence: JP)
  Receive Date: 20251210
  Receipt Date: 20251210
  Transmission Date: 20260117
  Serious: Yes (Death, Hospitalization, Other)
  Sender: MERCK SHARP & DOHME LLC
  Company Number: JP-009507513-2358532

PATIENT
  Age: 59 Year
  Sex: Male

DRUGS (2)
  1. KEYTRUDA [Suspect]
     Active Substance: PEMBROLIZUMAB
     Indication: Transitional cell cancer of the renal pelvis and ureter
     Dosage: 2 COURSES
     Route: 065
  2. ENFORTUMAB VEDOTIN [Suspect]
     Active Substance: ENFORTUMAB VEDOTIN
     Indication: Transitional cell cancer of the renal pelvis and ureter
     Route: 065

REACTIONS (5)
  - Immune-mediated myocarditis [Fatal]
  - Malignant neoplasm progression [Unknown]
  - Colitis [Unknown]
  - Disseminated intravascular coagulation [Unknown]
  - Thrombocytopenia [Unknown]
